FAERS Safety Report 18278712 (Version 1)
Quarter: 2020Q3

REPORT INFORMATION
  Report Type: Spontaneous
  Country: US (occurrence: US)
  Receive Date: 20200917
  Receipt Date: 20200917
  Transmission Date: 20201103
  Serious: No
  Sender: FDA-Public Use
  Company Number: US-BAYER-2020-200669

PATIENT
  Sex: Female

DRUGS (3)
  1. CLARITIN LIQUI?GELS [Suspect]
     Active Substance: LORATADINE
     Indication: NASOPHARYNGITIS
  2. WIXELA INHUB [Concomitant]
     Active Substance: FLUTICASONE PROPIONATE\SALMETEROL XINAFOATE
     Dosage: UNK
  3. CLARITIN LIQUI?GELS [Suspect]
     Active Substance: LORATADINE
     Indication: HYPERSENSITIVITY
     Dosage: 1 DF, QD
     Route: 048
     Dates: start: 20200911, end: 20200915

REACTIONS (2)
  - Hypertension [Unknown]
  - Feeling abnormal [Unknown]
